FAERS Safety Report 25182119 (Version 2)
Quarter: 2025Q2

REPORT INFORMATION
  Report Type: Spontaneous
  Country: AU (occurrence: AU)
  Receive Date: 20250410
  Receipt Date: 20250417
  Transmission Date: 20250716
  Serious: Yes (Hospitalization, Other)
  Sender: NOVARTIS
  Company Number: AU-002147023-NVSC2025AU037776

PATIENT
  Age: 50 Year
  Sex: Female

DRUGS (5)
  1. LEQVIO [Suspect]
     Active Substance: INCLISIRAN SODIUM
     Indication: Blood cholesterol increased
     Route: 065
     Dates: start: 20241127
  2. LEQVIO [Suspect]
     Active Substance: INCLISIRAN SODIUM
     Route: 065
     Dates: start: 20250227
  3. INDAPAMIDE HEMIHYDRATE [Concomitant]
     Active Substance: INDAPAMIDE HEMIHYDRATE
     Indication: Blood pressure abnormal
     Route: 065
  4. LYRICA [Concomitant]
     Active Substance: PREGABALIN
     Indication: Neuralgia
     Route: 065
  5. PANTOPRAZOLE SODIUM [Concomitant]
     Active Substance: PANTOPRAZOLE SODIUM
     Indication: Gastrointestinal disorder
     Route: 065

REACTIONS (11)
  - Anaphylactic reaction [Unknown]
  - Throat tightness [Unknown]
  - Injection site rash [Unknown]
  - Injection site pain [Unknown]
  - Injection site irritation [Unknown]
  - Injection site pruritus [Recovering/Resolving]
  - Paraesthesia oral [Unknown]
  - Injection site discolouration [Unknown]
  - Injection site erythema [Unknown]
  - Blood cholesterol decreased [Unknown]
  - Chest pain [Unknown]

NARRATIVE: CASE EVENT DATE: 20241127
